FAERS Safety Report 24722768 (Version 1)
Quarter: 2024Q4

REPORT INFORMATION
  Report Type: Spontaneous
  Country: CN (occurrence: CN)
  Receive Date: 20241211
  Receipt Date: 20241211
  Transmission Date: 20250115
  Serious: Yes (Other)
  Sender: ABBVIE
  Company Number: CN-PFIZER INC-PV202400157450

PATIENT
  Age: 32 Year
  Sex: Male

DRUGS (2)
  1. AVIBACTAM SODIUM [Suspect]
     Active Substance: AVIBACTAM SODIUM
     Indication: Pseudomonas infection
     Dosage: UNK
     Route: 065
  2. POLYMYXIN B [Suspect]
     Active Substance: POLYMYXIN B
     Indication: Pseudomonas infection
     Dosage: UNK
     Route: 065

REACTIONS (3)
  - Septic shock [Unknown]
  - Drug resistance [Unknown]
  - Drug ineffective [Recovered/Resolved with Sequelae]
